FAERS Safety Report 13457372 (Version 1)
Quarter: 2017Q2

REPORT INFORMATION
  Report Type: Spontaneous
  Country: CA (occurrence: US)
  Receive Date: 20170419
  Receipt Date: 20170419
  Transmission Date: 20170830
  Serious: Yes (Disabling)
  Sender: FDA-Public Use
  Company Number: None

PATIENT
  Age: 25 Year
  Sex: Female
  Weight: 58.97 kg

DRUGS (2)
  1. ADVIL [Concomitant]
     Active Substance: IBUPROFEN
  2. MIRENA [Suspect]
     Active Substance: LEVONORGESTREL
     Indication: CONTRACEPTION
     Dates: start: 20170202

REACTIONS (15)
  - Hair growth abnormal [None]
  - Rash pruritic [None]
  - Vaginal discharge [None]
  - Muscle spasms [None]
  - Pain [None]
  - Haemorrhage [None]
  - Weight increased [None]
  - Acne cystic [None]
  - Skin exfoliation [None]
  - Erythema [None]
  - Dyspareunia [None]
  - Depressed mood [None]
  - Vaginal odour [None]
  - Rash [None]
  - Self esteem decreased [None]

NARRATIVE: CASE EVENT DATE: 20170312
